FAERS Safety Report 7559891-8 (Version None)
Quarter: 2011Q2

REPORT INFORMATION
  Report Type: 
  Country: None (occurrence: None)
  Receive Date: 20110617
  Receipt Date: 20110617
  Transmission Date: 20111010
  Serious: Yes (Other)
  Sender: FDA-Public Use
  Company Number: None

PATIENT
  Age: 72 Year
  Sex: Female
  Weight: 61.2356 kg

DRUGS (1)
  1. CIPRO [Suspect]
     Indication: URINARY TRACT INFECTION
     Dosage: PO
     Route: 048
     Dates: start: 20110201, end: 20110206

REACTIONS (5)
  - DENGUE FEVER [None]
  - PAIN IN EXTREMITY [None]
  - MUSCLE SPASMS [None]
  - GAIT DISTURBANCE [None]
  - PAIN [None]
